FAERS Safety Report 17174417 (Version 1)
Quarter: 2019Q4

REPORT INFORMATION
  Report Type: Spontaneous
  Country: US (occurrence: US)
  Receive Date: 20191126
  Receipt Date: 20191126
  Transmission Date: 20200122
  Serious: Yes (Hospitalization)
  Sender: FDA-Public Use
  Company Number: None

PATIENT
  Sex: Male

DRUGS (10)
  1. SIROLUMUS TAB 0.5MG [Suspect]
     Active Substance: SIROLIMUS
     Indication: RENAL TRANSPLANT
     Dosage: ?          OTHER FREQUENCY:EVERY OTHER DAY ;?
     Route: 048
     Dates: start: 20180405
  2. ATORVASTATIN [Concomitant]
     Active Substance: ATORVASTATIN
  3. SIROLIMUS 1MG [Suspect]
     Active Substance: SIROLIMUS
  4. AMIODARONE [Concomitant]
     Active Substance: AMIODARONE
  5. LEVOTHYROXINE. [Concomitant]
     Active Substance: LEVOTHYROXINE
  6. LANTUS [Concomitant]
     Active Substance: INSULIN GLARGINE
  7. PREDNISONE. [Concomitant]
     Active Substance: PREDNISONE
  8. NOVOLOG INJ PENFIL [Concomitant]
  9. ASPIRIN. [Concomitant]
     Active Substance: ASPIRIN
  10. WELLBUTRIN [Concomitant]
     Active Substance: BUPROPION HYDROCHLORIDE

REACTIONS (2)
  - Toe amputation [None]
  - Localised infection [None]
